FAERS Safety Report 6653829-3 (Version None)
Quarter: 2010Q1

REPORT INFORMATION
  Report Type: 
  Country: None (occurrence: None)
  Receive Date: 20100326
  Receipt Date: 20100319
  Transmission Date: 20100710
  Serious: Yes (Hospitalization)
  Sender: FDA-Public Use
  Company Number: B0638723A

PATIENT
  Sex: Male

DRUGS (6)
  1. VALTREX [Suspect]
     Indication: HERPES ZOSTER
     Dosage: 1000MG PER DAY
     Route: 048
     Dates: start: 20100303, end: 20100304
  2. PLETAL [Concomitant]
     Dosage: 200MG PER DAY
     Route: 048
  3. FAMOTIDINE [Concomitant]
     Indication: GASTRIC ULCER
     Dosage: 40MG PER DAY
     Route: 048
  4. THYRADIN S [Concomitant]
     Indication: HYPOTHYROIDISM
     Dosage: 25MG PER DAY
     Route: 048
  5. KAYEXALATE [Concomitant]
     Dosage: 5G PER DAY
     Route: 048
  6. RACOL [Concomitant]
     Dosage: 1200MG PER DAY
     Route: 048

REACTIONS (2)
  - ALTERED STATE OF CONSCIOUSNESS [None]
  - COMA [None]
